FAERS Safety Report 18944409 (Version 1)
Quarter: 2021Q1

REPORT INFORMATION
  Report Type: Report from Study
  Country: None (occurrence: US)
  Receive Date: 20210226
  Receipt Date: 20210226
  Transmission Date: 20210420
  Serious: Yes (Hospitalization)
  Sender: FDA-Public Use
  Company Number: US-ABBVIE-21K-163-3788794-00

PATIENT
  Sex: Female

DRUGS (4)
  1. CLOBETASOL PROPION [Concomitant]
     Indication: PRODUCT USED FOR UNKNOWN INDICATION
     Dosage: LOT 0.05 PERCENT
  2. SKYRIZI [Suspect]
     Active Substance: RISANKIZUMAB-RZAA
     Indication: PSORIASIS
     Route: 058
  3. BD [Concomitant]
     Indication: PRODUCT USED FOR UNKNOWN INDICATION
     Dosage: PEN MINI
  4. PROZAC [Concomitant]
     Active Substance: FLUOXETINE HYDROCHLORIDE
     Indication: PRODUCT USED FOR UNKNOWN INDICATION

REACTIONS (1)
  - Kidney infection [Recovered/Resolved]
